FAERS Safety Report 24228726 (Version 1)
Quarter: 2024Q3

REPORT INFORMATION
  Report Type: Spontaneous
  Country: US (occurrence: US)
  Receive Date: 20240820
  Receipt Date: 20240820
  Transmission Date: 20241017
  Serious: No
  Sender: SANOFI AVENTIS
  Company Number: US-SA-2023MK000126

PATIENT
  Age: 74 Year
  Sex: Male

DRUGS (7)
  1. AFREZZA [Suspect]
     Active Substance: INSULIN HUMAN
     Indication: Type 2 diabetes mellitus
     Dosage: WITH BREAKAST
     Dates: start: 2019
  2. AFREZZA [Suspect]
     Active Substance: INSULIN HUMAN
     Dosage: WITH LUNCH
     Dates: start: 2019
  3. AFREZZA [Suspect]
     Active Substance: INSULIN HUMAN
     Dosage: WITH DINNER
     Dates: start: 2019
  4. AFREZZA [Suspect]
     Active Substance: INSULIN HUMAN
     Dosage: WITH BREAKFAST
  5. AFREZZA [Suspect]
     Active Substance: INSULIN HUMAN
     Dosage: WITH LUNCH
  6. AFREZZA [Suspect]
     Active Substance: INSULIN HUMAN
     Dosage: WITH DINNER
  7. AFREZZA [Suspect]
     Active Substance: INSULIN HUMAN
     Dosage: AFTER LUNCH
     Dates: start: 20231220

REACTIONS (2)
  - Blood glucose increased [Not Recovered/Not Resolved]
  - Drug ineffective [Not Recovered/Not Resolved]

NARRATIVE: CASE EVENT DATE: 20231220
